FAERS Safety Report 9301931 (Version 2)
Quarter: 2013Q2

REPORT INFORMATION
  Report Type: Spontaneous
  Country: DZ (occurrence: DZ)
  Receive Date: 20130521
  Receipt Date: 20130613
  Transmission Date: 20140414
  Serious: Yes (Hospitalization)
  Sender: FDA-Public Use
  Company Number: DZ-PFIZER INC-2013156116

PATIENT
  Age: 67 Year
  Sex: Female

DRUGS (5)
  1. LYRICA [Suspect]
     Indication: DIABETIC NEUROPATHY
     Dosage: 50 MG, UNK
  2. LYRICA [Suspect]
     Dosage: 150 MG, 2X/DAY
     Route: 048
     Dates: start: 201205, end: 201302
  3. COAPROVEL [Concomitant]
     Dosage: 300/12.5 MG, 1X/DAY
     Route: 048
  4. ASPEGIC [Concomitant]
     Dosage: SACHET, 1X/DAY
     Route: 048
  5. GLIMEPIRIDE [Concomitant]
     Dosage: 2 MG, 1X/DAY
     Route: 048

REACTIONS (2)
  - Dermatitis bullous [Recovered/Resolved with Sequelae]
  - Pruritus [Recovered/Resolved]
